FAERS Safety Report 6194775-1 (Version None)
Quarter: 2009Q2

REPORT INFORMATION
  Report Type: 
  Country: None (occurrence: None)
  Receive Date: 20090515
  Receipt Date: 20090515
  Transmission Date: 20091009
  Serious: No
  Sender: FDA-Public Use
  Company Number: None

PATIENT
  Age: 53 Year
  Sex: Female
  Weight: 62.1428 kg

DRUGS (1)
  1. CHANTIX [Suspect]
     Dates: start: 20081125, end: 20081208

REACTIONS (5)
  - DEPRESSION [None]
  - FEELING JITTERY [None]
  - HOMICIDAL IDEATION [None]
  - IRRITABILITY [None]
  - MOOD ALTERED [None]
